FAERS Safety Report 9683545 (Version 1)
Quarter: 2013Q4

REPORT INFORMATION
  Report Type: Spontaneous
  Country: US (occurrence: None)
  Receive Date: 20131111
  Receipt Date: 20131111
  Transmission Date: 20140711
  Serious: Yes (Life-Threatening, Hospitalization)
  Sender: FDA-Public Use
  Company Number: None

PATIENT
  Age: 71 Year
  Sex: Male
  Weight: 90.5 kg

DRUGS (2)
  1. WARFARIN [Suspect]
     Indication: ATRIAL FIBRILLATION
     Route: 048
     Dates: start: 20121210, end: 20131030
  2. ASPIRIN [Suspect]
     Route: 048
     Dates: start: 20131016, end: 20131030

REACTIONS (3)
  - Haemorrhage [None]
  - Anaemia [None]
  - Gastric haemorrhage [None]
